FAERS Safety Report 20159026 (Version 1)
Quarter: 2021Q4

REPORT INFORMATION
  Report Type: Other
  Country: CN (occurrence: None)
  Receive Date: 20211208
  Receipt Date: 20211208
  Transmission Date: 20220303
  Serious: Yes (Other)
  Sender: FDA-Public Use
  Company Number: CN-ROCHE-2969280

PATIENT

DRUGS (3)
  1. TRASTUZUMAB [Suspect]
     Active Substance: TRASTUZUMAB
     Indication: HER2 positive breast cancer
     Dosage: LOADING DOSE
     Route: 042
  2. TRASTUZUMAB [Suspect]
     Active Substance: TRASTUZUMAB
     Route: 042
  3. NEDAPLATIN [Suspect]
     Active Substance: NEDAPLATIN
     Indication: HER2 positive breast cancer
     Dosage: TOTAL OF 6 CYCLE TREATMENTS
     Route: 041

REACTIONS (2)
  - Myelosuppression [Unknown]
  - Cardiotoxicity [Unknown]
